FAERS Safety Report 23855246 (Version 1)
Quarter: 2024Q2

REPORT INFORMATION
  Report Type: Spontaneous
  Country: US (occurrence: US)
  Receive Date: 20240514
  Receipt Date: 20240514
  Transmission Date: 20240717
  Serious: No
  Sender: FDA-Public Use
  Company Number: US-SANOFI-02037487

PATIENT
  Age: 51 Year
  Sex: Female

DRUGS (1)
  1. KEVZARA [Suspect]
     Active Substance: SARILUMAB
     Indication: Rheumatoid arthritis
     Dosage: 200 MG, QOW
     Dates: start: 2024

REACTIONS (5)
  - Feeling hot [Unknown]
  - Migraine [Recovered/Resolved]
  - Urticaria [Not Recovered/Not Resolved]
  - Injection site reaction [Unknown]
  - Drug ineffective [Unknown]

NARRATIVE: CASE EVENT DATE: 20240101
